FAERS Safety Report 7300709-6 (Version None)
Quarter: 2011Q1

REPORT INFORMATION
  Report Type: 
  Country: None (occurrence: None)
  Receive Date: 20110103
  Receipt Date: 20100506
  Transmission Date: 20110831
  Serious: Yes (Other)
  Sender: FDA-Public Use
  Company Number: US-004453

PATIENT
  Age: 29 Year
  Sex: Male

DRUGS (4)
  1. PAIN MEDICATION [Concomitant]
  2. PROHANCE [Suspect]
     Indication: NUCLEAR MAGNETIC RESONANCE IMAGING
     Dosage: 17ML ONCE INTRAVENOUS
     Route: 042
     Dates: start: 20100503, end: 20100503
  3. PROHANCE [Suspect]
     Indication: ARTHRALGIA
     Dosage: 17ML ONCE INTRAVENOUS
     Route: 042
     Dates: start: 20100503, end: 20100503
  4. PROHANCE [Suspect]
     Indication: MUSCULOSKELETAL PAIN
     Dosage: 17ML ONCE INTRAVENOUS
     Route: 042
     Dates: start: 20100503, end: 20100503

REACTIONS (4)
  - DYSPNOEA [None]
  - DYSPHONIA [None]
  - PHARYNGEAL OEDEMA [None]
  - COUGH [None]
